FAERS Safety Report 16257962 (Version 4)
Quarter: 2021Q4

REPORT INFORMATION
  Report Type: Spontaneous
  Country: US (occurrence: US)
  Receive Date: 20190430
  Receipt Date: 20211014
  Transmission Date: 20220303
  Serious: Yes (Other)
  Sender: FDA-Public Use
  Company Number: US-BAYER-2019-085384

PATIENT
  Age: 38 Year
  Sex: Female

DRUGS (16)
  1. MAGNEVIST [Suspect]
     Active Substance: GADOPENTETATE DIMEGLUMINE
     Indication: Magnetic resonance imaging head
     Dosage: 15 ML, ONCE
     Route: 042
     Dates: start: 20140715, end: 20140715
  2. GADOLINIUM [Suspect]
     Active Substance: GADOLINIUM
     Dosage: UNK, ONCE
     Route: 042
     Dates: start: 20121023, end: 20121023
  3. OPTIMARK [Suspect]
     Active Substance: GADOVERSETAMIDE
     Indication: Magnetic resonance imaging abdominal
     Dosage: TOTAL OF 26 CC OF OPTIMARK
     Dates: start: 20070822
  4. OPTIMARK [Suspect]
     Active Substance: GADOVERSETAMIDE
     Indication: Magnetic resonance imaging head
     Dosage: UNK, ONCE
     Route: 042
     Dates: start: 20080804, end: 20080804
  5. OPTIMARK [Suspect]
     Active Substance: GADOVERSETAMIDE
     Indication: Magnetic resonance imaging spinal
     Dosage: 10CC OF OPTIMARK
     Dates: start: 20100331, end: 20100331
  6. OPTIMARK [Suspect]
     Active Substance: GADOVERSETAMIDE
     Indication: Magnetic resonance imaging
     Dosage: 15 CC OF OPTIMARK
     Route: 042
     Dates: start: 20130517, end: 20130517
  7. OPTIMARK [Suspect]
     Active Substance: GADOVERSETAMIDE
     Indication: Magnetic resonance imaging abdominal
     Dosage: 15 CC OF OPTIMARK
     Route: 042
     Dates: start: 20130814, end: 20130814
  8. OPTIMARK [Suspect]
     Active Substance: GADOVERSETAMIDE
     Indication: Magnetic resonance imaging abdominal
     Dosage: 15 CC OF OPTIMARK
     Route: 042
     Dates: start: 20161222, end: 20161222
  9. OMNISCAN [Suspect]
     Active Substance: GADODIAMIDE
     Indication: Magnetic resonance imaging spinal
     Dosage: UNK, ONCE
     Route: 042
     Dates: start: 20121218, end: 20121218
  10. OMNISCAN [Suspect]
     Active Substance: GADODIAMIDE
     Indication: Magnetic resonance imaging spinal
     Dosage: 20 ML OF OMNSCAN
     Route: 042
     Dates: start: 20130716, end: 20130716
  11. OMNISCAN [Suspect]
     Active Substance: GADODIAMIDE
     Indication: Magnetic resonance imaging spinal
     Dosage: 10CC OF OMNISCAN
     Dates: start: 20160324, end: 20160324
  12. ADDERALL [Concomitant]
     Active Substance: AMPHETAMINE ASPARTATE\AMPHETAMINE SULFATE\DEXTROAMPHETAMINE SACCHARATE\DEXTROAMPHETAMINE SULFATE
     Dosage: 15 MG, OM
     Route: 048
  13. ADDERALL [Concomitant]
     Active Substance: AMPHETAMINE ASPARTATE\AMPHETAMINE SULFATE\DEXTROAMPHETAMINE SACCHARATE\DEXTROAMPHETAMINE SULFATE
     Dosage: 10 MG, QD AT 3 P.M.
  14. PREDNISONE [Concomitant]
     Active Substance: PREDNISONE
  15. FENTANYL [Concomitant]
     Active Substance: FENTANYL
  16. MORPHINE [Concomitant]
     Active Substance: MORPHINE

REACTIONS (91)
  - Gadolinium deposition disease [Not Recovered/Not Resolved]
  - Contrast media toxicity [None]
  - Neuropathy peripheral [None]
  - Rash [None]
  - Dermatitis [None]
  - Burning sensation [None]
  - Skin hyperpigmentation [None]
  - Dry skin [None]
  - Skin atrophy [None]
  - Skin exfoliation [None]
  - Hyperkeratosis [None]
  - Tooth discolouration [None]
  - Tooth fracture [None]
  - Hyperaesthesia teeth [None]
  - Feeling abnormal [None]
  - Amnesia [None]
  - Arthralgia [None]
  - Back pain [None]
  - Bone pain [None]
  - Fatigue [None]
  - Myalgia [None]
  - Muscle contractions involuntary [None]
  - Anosmia [None]
  - Tremor [None]
  - Memory impairment [None]
  - Pain [None]
  - Muscle twitching [None]
  - Coordination abnormal [None]
  - Vision blurred [None]
  - Tinnitus [None]
  - Headache [None]
  - Skin discolouration [None]
  - Skin burning sensation [None]
  - Paraesthesia [None]
  - Neuralgia [None]
  - Muscular weakness [None]
  - Nontherapeutic agent urine positive [None]
  - Contrast media deposition [None]
  - Renal disorder [None]
  - Hepatic lesion [None]
  - Central nervous system lesion [None]
  - Hypoaesthesia [None]
  - Bone pain [None]
  - Feeling abnormal [None]
  - Paraesthesia [None]
  - Trichorrhexis [None]
  - Alopecia [None]
  - Fall [None]
  - Paralysis [None]
  - Gastrointestinal disorder [None]
  - Muscle spasticity [None]
  - Muscle spasms [None]
  - Skin lesion [None]
  - Foreign body in skin or subcutaneous tissue [None]
  - Heavy metal increased [None]
  - Blister [None]
  - Pruritus [None]
  - Tongue discolouration [None]
  - Gingival discolouration [None]
  - Nail disorder [None]
  - Constipation [None]
  - Adrenal insufficiency [None]
  - Axillary mass [None]
  - Bladder disorder [None]
  - Balance disorder [None]
  - Gait disturbance [None]
  - Insomnia [None]
  - Depression [None]
  - Anxiety [None]
  - Speech disorder [None]
  - Skin infection [None]
  - Hyperhidrosis [None]
  - Bone loss [None]
  - Calcium deficiency [None]
  - Osteoporosis [None]
  - Bursitis [None]
  - Arthritis infective [None]
  - Illness [None]
  - Pain [None]
  - Fatigue [None]
  - Hypoaesthesia [None]
  - Muscle twitching [None]
  - Paraesthesia [None]
  - Dyskinesia [None]
  - Neuromyopathy [None]
  - Gait disturbance [None]
  - Skin discolouration [None]
  - Trichorrhexis [None]
  - Multiple sclerosis [None]
  - Pain [None]
  - Hypoaesthesia [None]

NARRATIVE: CASE EVENT DATE: 20080101
